FAERS Safety Report 14111952 (Version 1)
Quarter: 2017Q4

REPORT INFORMATION
  Report Type: Spontaneous
  Country: US (occurrence: US)
  Receive Date: 20171020
  Receipt Date: 20171020
  Transmission Date: 20180321
  Serious: Yes (Congenital Anomaly, Other)
  Sender: FDA-Public Use
  Company Number: US-ABBVIE-17P-163-2132640-00

PATIENT
  Sex: Male

DRUGS (2)
  1. VALPROIC ACID. [Suspect]
     Active Substance: VALPROIC ACID
     Indication: MATERNAL EXPOSURE TIMING UNSPECIFIED
     Route: 064
  2. DIPHENYLHYDANTOIN [Suspect]
     Active Substance: PHENYTOIN
     Indication: MATERNAL EXPOSURE TIMING UNSPECIFIED
     Route: 064

REACTIONS (12)
  - Congenital genital malformation male [Unknown]
  - Foetal exposure during pregnancy [Unknown]
  - Craniofacial deformity [Unknown]
  - Congenital nose malformation [Unknown]
  - Skull malformation [Unknown]
  - Congenital genital malformation [Unknown]
  - Prominent epicanthal folds [Unknown]
  - Head deformity [Unknown]
  - Foetal anticonvulsant syndrome [Unknown]
  - Hypotonia [Unknown]
  - Developmental delay [Unknown]
  - Dysmorphism [Unknown]
